FAERS Safety Report 5375639-X (Version None)
Quarter: 2007Q2

REPORT INFORMATION
  Report Type: 
  Country: None (occurrence: None)
  Receive Date: 20070628
  Receipt Date: 20070619
  Transmission Date: 20071010
  Serious: Yes (Other)
  Sender: FDA-Public Use
  Company Number: 011077

PATIENT
  Age: 26 Year
  Sex: Female
  Weight: 62.6 kg

DRUGS (2)
  1. CLARAVIS [Suspect]
     Dosage: SEE IMAGE
     Route: 048
     Dates: start: 20060725, end: 20061027
  2. CLARAVIS [Suspect]
     Dosage: SEE IMAGE
     Route: 048
     Dates: start: 20060725, end: 20061027

REACTIONS (2)
  - DRUG EXPOSURE BEFORE PREGNANCY [None]
  - PREGNANCY [None]
